FAERS Safety Report 10376265 (Version 2)
Quarter: 2014Q4

REPORT INFORMATION
  Report Type: Report from Study
  Country: US (occurrence: US)
  Receive Date: 20140811
  Receipt Date: 20141103
  Transmission Date: 20150528
  Serious: Yes (Hospitalization)
  Sender: FDA-Public Use
  Company Number: US-SA-2014SA105224

PATIENT
  Age: 76 Year
  Sex: Male
  Weight: 65.2 kg

DRUGS (13)
  1. RAMUCIRUMAB [Suspect]
     Active Substance: RAMUCIRUMAB
     Indication: BLADDER CANCER
     Route: 042
     Dates: start: 20131230, end: 20131230
  2. OTHER AGENTS FOR LOCAL ORAL TREATMENT [Concomitant]
     Indication: STOMATITIS
  3. COMPAZINE [Concomitant]
     Active Substance: PROCHLORPERAZINE MALEATE
     Dates: start: 20140129
  4. LORATADINE. [Concomitant]
     Active Substance: LORATADINE
     Dates: start: 20140330
  5. RAMUCIRUMAB [Suspect]
     Active Substance: RAMUCIRUMAB
     Indication: BLADDER CANCER
     Route: 042
     Dates: start: 20140630, end: 20140630
  6. HYTRIN [Concomitant]
     Active Substance: TERAZOSIN HYDROCHLORIDE
     Dates: start: 20130101
  7. NEURONTIN [Concomitant]
     Active Substance: GABAPENTIN
     Dates: start: 20140228
  8. DEXAMETHASONE. [Concomitant]
     Active Substance: DEXAMETHASONE
     Dates: start: 20131229
  9. DOCETAXEL. [Suspect]
     Active Substance: DOCETAXEL
     Indication: BLADDER CANCER
     Route: 042
     Dates: start: 20140630, end: 20140630
  10. ZOFRAN [Concomitant]
     Active Substance: ONDANSETRON HYDROCHLORIDE
     Dates: start: 20140120
  11. DOCETAXEL. [Suspect]
     Active Substance: DOCETAXEL
     Indication: BLADDER CANCER
     Route: 042
     Dates: start: 20131230, end: 20131230
  12. LATANOPROST. [Concomitant]
     Active Substance: LATANOPROST
     Dates: start: 2013
  13. LASIX [Concomitant]
     Active Substance: FUROSEMIDE
     Dates: start: 20140127

REACTIONS (2)
  - Urinary tract infection [Unknown]
  - Acute kidney injury [Recovered/Resolved]

NARRATIVE: CASE EVENT DATE: 20140716
